FAERS Safety Report 5787840-1 (Version None)
Quarter: 2008Q2

REPORT INFORMATION
  Report Type: 
  Country: None (occurrence: None)
  Receive Date: 20080624
  Receipt Date: 20080624
  Transmission Date: 20081010
  Serious: Yes (Hospitalization, Other)
  Sender: FDA-Public Use
  Company Number: None

PATIENT
  Age: 28 Year
  Sex: Female
  Weight: 81.6475 kg

DRUGS (2)
  1. CLINDAMYCIN HCL [Suspect]
     Indication: ABSCESS
     Dosage: UNSURE BID IV DRIP
     Route: 041
     Dates: start: 20080128, end: 20080131
  2. CLINDAMYCIN HCL [Suspect]
     Indication: ANIMAL BITE
     Dosage: UNSURE BID IV DRIP
     Route: 041
     Dates: start: 20080128, end: 20080131

REACTIONS (2)
  - DRUG HYPERSENSITIVITY [None]
  - SKIN DISCOLOURATION [None]
